FAERS Safety Report 8807558 (Version 1)
Quarter: 2012Q4

REPORT INFORMATION
  Report Type: 
  Country: US (occurrence: US)
  Receive Date: 20120925
  Receipt Date: 20120925
  Transmission Date: 20130627
  Serious: No
  Sender: FDA-Public Use
  Company Number: US-FOUGERA-2012FO000318

PATIENT
  Age: 9 Year
  Sex: Male

DRUGS (2)
  1. LIDOCAINE + PRILOCAINE [Suspect]
     Indication: LOCAL ANAESTHESIA
     Route: 061
     Dates: start: 201112, end: 201112
  2. BENADRYL /01563701/ [Concomitant]
     Indication: PRODUCT USED FOR UNKNOWN INDICATION
     Dates: start: 201112

REACTIONS (1)
  - Application site rash [Unknown]
